FAERS Safety Report 8755883 (Version 2)
Quarter: 2013Q2

REPORT INFORMATION
  Report Type: Report from Study
  Country: JP (occurrence: JP)
  Receive Date: 20120827
  Receipt Date: 20130618
  Transmission Date: 20140414
  Serious: Yes (Other)
  Sender: FDA-Public Use
  Company Number: JP-009507513-1207JPN012902

PATIENT
  Age: 75 Year
  Sex: Male

DRUGS (71)
  1. CONTOMIN [Concomitant]
     Dosage: UNK
     Dates: start: 20110810, end: 20110810
  2. SODIUM BICARBONATE [Concomitant]
     Dosage: UNK
     Dates: start: 20110308
  3. MAGNESIUM OXIDE [Concomitant]
     Dosage: UNK
     Dates: start: 20110308
  4. HANGE-SHASHIN-TO [Concomitant]
     Dosage: UNK
     Dates: start: 20110308
  5. PARIET [Concomitant]
     Dosage: UNK
     Dates: start: 20110308
  6. URSO [Concomitant]
     Dosage: UNK
     Dates: start: 20110308
  7. TRANSAMIN [Concomitant]
     Dosage: UNK
     Dates: start: 20110308
  8. URIEF [Concomitant]
     Dosage: UNK
     Dates: start: 20110325
  9. ARGAMATE JELLY [Concomitant]
     Dosage: UNK
     Dates: start: 20110411
  10. MAGLAX [Concomitant]
     Dosage: UNK
     Dates: start: 20110419
  11. EMEND [Suspect]
     Indication: PROPHYLAXIS OF NAUSEA AND VOMITING
     Dosage: 125 MG, ONCE
     Route: 048
     Dates: start: 20110309, end: 20110309
  12. EMEND [Suspect]
     Dosage: 80 MG, QD
     Route: 048
     Dates: start: 20110310, end: 20110311
  13. EMEND [Suspect]
     Dosage: 125 MG, ONCE
     Route: 048
     Dates: start: 20110412, end: 20110412
  14. EMEND [Suspect]
     Dosage: 80 MG, QD
     Route: 048
     Dates: start: 20110413, end: 20110414
  15. EMEND [Suspect]
     Dosage: 125 MG, ONCE
     Route: 048
     Dates: start: 20110510, end: 20110510
  16. EMEND [Suspect]
     Dosage: 80 MG, QD
     Route: 048
     Dates: start: 20110511, end: 20110512
  17. EMEND [Suspect]
     Dosage: 125 MG, ONCE
     Route: 048
     Dates: start: 20110607, end: 20110607
  18. EMEND [Suspect]
     Dosage: 80 MG, QD
     Route: 048
     Dates: start: 20110608, end: 20110609
  19. EMEND [Suspect]
     Dosage: 80 MG, QD
     Route: 048
     Dates: start: 20110810, end: 20110811
  20. EMEND [Suspect]
     Dosage: 125 MG, ONCE
     Route: 048
     Dates: start: 20110712, end: 20110712
  21. EMEND [Suspect]
     Dosage: 80 MG, QD
     Route: 048
     Dates: start: 20110713, end: 20110715
  22. EMEND [Suspect]
     Dosage: 125 MG, ONCE
     Route: 048
     Dates: start: 20111012, end: 20111012
  23. EMEND [Suspect]
     Dosage: 80 MG, QD
     Route: 048
     Dates: start: 20110907, end: 20110908
  24. EMEND [Suspect]
     Dosage: 125 MG, ONCE
     Route: 048
     Dates: start: 20110809, end: 20110809
  25. EMEND [Suspect]
     Dosage: 80 MG, QD
     Route: 048
     Dates: start: 20111013, end: 20111014
  26. EMEND [Suspect]
     Dosage: 125 MG, ONCE
     Route: 048
     Dates: start: 20110906, end: 20110906
  27. CISPLATIN [Concomitant]
     Dosage: 95 MG, ONCE
     Dates: start: 20110309, end: 20110309
  28. CISPLATIN [Concomitant]
     Dosage: 95 MG, ONCE
     Dates: start: 20110412, end: 20110412
  29. CISPLATIN [Concomitant]
     Dosage: 95 MG, ONCE
     Dates: start: 20110510, end: 20110510
  30. CISPLATIN [Concomitant]
     Dosage: 95 MG, ONCE
     Dates: start: 20110607, end: 20110607
  31. CISPLATIN [Concomitant]
     Dosage: 95 MG, ONCE
     Dates: start: 20110712, end: 20110712
  32. CISPLATIN [Concomitant]
     Dosage: 95 MG, ONCE
     Dates: start: 20110809, end: 20110809
  33. CISPLATIN [Concomitant]
     Dosage: 76 MG, ONCE
     Dates: start: 20110906, end: 20110906
  34. CISPLATIN [Concomitant]
     Dosage: 70 MG, ONCE
     Dates: start: 20111012
  35. IRINOTECAN HYDROCHLORIDE [Concomitant]
     Dosage: 95 MG, ONCE
     Dates: start: 20110309, end: 20110309
  36. IRINOTECAN HYDROCHLORIDE [Concomitant]
     Dosage: 95 MG, ONCE
     Dates: start: 20110412, end: 20110412
  37. IRINOTECAN HYDROCHLORIDE [Concomitant]
     Dosage: 95 MG, ONCE
     Dates: start: 20110510, end: 20110510
  38. IRINOTECAN HYDROCHLORIDE [Concomitant]
     Dosage: 95 MG, ONCE
     Dates: start: 20110607, end: 20110607
  39. IRINOTECAN HYDROCHLORIDE [Concomitant]
     Dosage: 95 MG, ONCE
     Dates: start: 20110712, end: 20110712
  40. IRINOTECAN HYDROCHLORIDE [Concomitant]
     Dosage: 95 MG, ONCE
     Dates: start: 20110809, end: 20110809
  41. IRINOTECAN HYDROCHLORIDE [Concomitant]
     Dosage: 76 MG, ONCE
     Dates: start: 20110906, end: 20110906
  42. IRINOTECAN HYDROCHLORIDE [Concomitant]
     Dosage: 70 MG, ONCE
     Dates: start: 20111012
  43. DEXART [Concomitant]
     Dosage: 13.20 MG, QD
     Dates: start: 20110309, end: 20110311
  44. DEXART [Concomitant]
     Dosage: 13.20 MG, QD
     Dates: start: 20110412, end: 20110414
  45. DEXART [Concomitant]
     Dosage: 13.20 MG, QD
     Dates: start: 20110510, end: 20110512
  46. DEXART [Concomitant]
     Dosage: 13.20 MG, QD
     Dates: start: 20110607, end: 20110607
  47. DEXART [Concomitant]
     Dosage: 13.20 MG, QD
     Dates: start: 20110712, end: 20110712
  48. DEXART [Concomitant]
     Dosage: 13.20 MG, QD
     Dates: start: 20110809, end: 20110809
  49. DEXART [Concomitant]
     Dosage: 13.20 MG, QD
     Dates: start: 20110906, end: 20110906
  50. DEXART [Concomitant]
     Dosage: 13.20 MG, QD
     Dates: start: 20111012, end: 20111012
  51. DEXART [Concomitant]
     Dosage: 6.6 MG, QD
     Dates: start: 20110608, end: 20110609
  52. DEXART [Concomitant]
     Dosage: 6.6 MG, QD
     Dates: start: 20110713, end: 20110714
  53. DEXART [Concomitant]
     Dosage: 6.6 MG, QD
     Dates: start: 20110810, end: 20110811
  54. DEXART [Concomitant]
     Dosage: 6.6 MG, QD
     Dates: start: 20110907, end: 20110908
  55. DEXART [Concomitant]
     Dosage: 6.6 MG, QD
     Dates: start: 20111013, end: 20111014
  56. GRANISETRON [Concomitant]
     Dosage: 3.3 MG, QD
     Dates: start: 20110309, end: 20110311
  57. GRANISETRON [Concomitant]
     Dosage: 3.3 MG, QD
     Dates: start: 20110412, end: 20110414
  58. GRANISETRON [Concomitant]
     Dosage: 3.3 MG, QD
     Dates: start: 20110510, end: 20110512
  59. GRANISETRON [Concomitant]
     Dosage: 6 MG, ONCE
     Dates: start: 20110607, end: 20110607
  60. GRANISETRON [Concomitant]
     Dosage: 6 MG, ONCE
     Dates: start: 20110712, end: 20110712
  61. GRANISETRON [Concomitant]
     Dosage: 6 MG, ONCE
     Dates: start: 20110809, end: 20110809
  62. GRANISETRON [Concomitant]
     Dosage: 6 MG, ONCE
     Dates: start: 20110906, end: 20110906
  63. GRANISETRON [Concomitant]
     Dosage: 6 MG, ONCE
     Dates: start: 20111012, end: 20111012
  64. GRANISETRON [Concomitant]
     Dosage: 3 MG, QD
     Dates: start: 20110608, end: 20110609
  65. GRANISETRON [Concomitant]
     Dosage: 3 MG, QD
     Dates: start: 20110713, end: 20110714
  66. GRANISETRON [Concomitant]
     Dosage: 3 MG, QD
     Dates: start: 20110810, end: 20110811
  67. GRANISETRON [Concomitant]
     Dosage: 3 MG, QD
     Dates: start: 20110907, end: 20110908
  68. GRANISETRON [Concomitant]
     Dosage: 3 MG, QD
     Dates: start: 20111013, end: 20111014
  69. CONTOMIN [Concomitant]
     Dosage: UNK
     Dates: start: 20110310, end: 20110310
  70. CONTOMIN [Concomitant]
     Dosage: UNK
     Dates: start: 20110412, end: 20110412
  71. CONTOMIN [Concomitant]
     Dosage: UNK
     Dates: start: 20110510, end: 20110510

REACTIONS (5)
  - Renal failure acute [Unknown]
  - Neutrophil count decreased [Unknown]
  - Pyrexia [Unknown]
  - Hyperkalaemia [Unknown]
  - Constipation [Unknown]
